FAERS Safety Report 6280035-7 (Version None)
Quarter: 2009Q3

REPORT INFORMATION
  Report Type: 
  Country: None (occurrence: None)
  Receive Date: 20090723
  Receipt Date: 20090714
  Transmission Date: 20100115
  Serious: Yes (Other)
  Sender: FDA-Public Use
  Company Number: NL-PFIZER INC-2009239979

PATIENT
  Age: 59 Year

DRUGS (7)
  1. METHYLPREDNISOLONE AND METHYLPREDNISOLONE ACETATE AND METHYLPREDNISOLO [Suspect]
     Indication: MUSCULOSKELETAL PAIN
     Dosage: ONCE PER TWO TO THREE WEEKS
     Dates: start: 20070101
  2. SULFASALAZINE [Suspect]
     Indication: THERMAL BURN
     Dosage: UNK
  3. METFORMIN HYDROCHLORIDE [Concomitant]
     Indication: TYPE 2 DIABETES MELLITUS
     Route: 048
  4. GLIMEPIRIDE [Concomitant]
     Indication: TYPE 2 DIABETES MELLITUS
     Route: 048
  5. METHOTREXATE [Concomitant]
     Indication: MUSCULOSKELETAL PAIN
     Dosage: UNK
     Dates: start: 20070101
  6. MANNITOL [Concomitant]
     Indication: AUTOIMMUNE DISORDER
  7. ACETYLCYSTEINE [Concomitant]
     Indication: AUTOIMMUNE DISORDER

REACTIONS (2)
  - ANGIOEDEMA [None]
  - MUSCULAR DYSTROPHY [None]
